FAERS Safety Report 7884927-4 (Version None)
Quarter: 2011Q4

REPORT INFORMATION
  Report Type: 
  Country: None (occurrence: None)
  Receive Date: 20111102
  Receipt Date: 20111028
  Transmission Date: 20120403
  Serious: Yes (Hospitalization)
  Sender: FDA-Public Use
  Company Number: DE-ABBOTT-11P-062-0869649-00

PATIENT
  Age: 28 Year
  Sex: Female
  Weight: 66 kg

DRUGS (4)
  1. HUMIRA [Suspect]
     Indication: CROHN'S DISEASE
     Dates: start: 20110426
  2. VITAMIN D [Concomitant]
     Indication: PRODUCT USED FOR UNKNOWN INDICATION
  3. BUDESONIDE [Concomitant]
     Indication: CROHN'S DISEASE
     Dates: start: 20110818, end: 20111028
  4. CALCIUM [Concomitant]
     Indication: PRODUCT USED FOR UNKNOWN INDICATION

REACTIONS (2)
  - ABSCESS INTESTINAL [None]
  - INTESTINAL FISTULA [None]
